FAERS Safety Report 11157794 (Version 1)
Quarter: 2015Q2

REPORT INFORMATION
  Report Type: Spontaneous
  Country: TR (occurrence: None)
  Receive Date: 20150601
  Receipt Date: 20150601
  Transmission Date: 20150821
  Serious: Yes (Hospitalization)
  Sender: FDA-Public Use
  Company Number: CC400258587

PATIENT
  Age: 29 Year
  Sex: Male

DRUGS (2)
  1. EPINEPHRINE HCL [Concomitant]
     Active Substance: EPINEPHRINE
  2. LIDOCAINE HYDROCHLORIDE. [Suspect]
     Active Substance: LIDOCAINE HYDROCHLORIDE
     Indication: LOCAL ANAESTHESIA

REACTIONS (5)
  - Hypoaesthesia [None]
  - Hallucination, visual [None]
  - Agitation [None]
  - Delirium [None]
  - Vision blurred [None]
